FAERS Safety Report 16368234 (Version 2)
Quarter: 2019Q3

REPORT INFORMATION
  Report Type: Spontaneous
  Country: JP (occurrence: JP)
  Receive Date: 20190529
  Receipt Date: 20190905
  Transmission Date: 20191004
  Serious: Yes (Other)
  Sender: FDA-Public Use
  Company Number: JP-PFIZER INC-2019225883

PATIENT
  Age: 74 Year
  Sex: Male
  Weight: 82 kg

DRUGS (2)
  1. BOSULIF [Suspect]
     Active Substance: BOSUTINIB MONOHYDRATE
     Dosage: 100 MG, DAILY
     Route: 048
     Dates: start: 20180111, end: 20190520
  2. SPRYCEL [Suspect]
     Active Substance: DASATINIB
     Dosage: 20 MG, 1X/DAY
     Route: 048
     Dates: start: 20150930, end: 20171204

REACTIONS (7)
  - Cardiomegaly [Unknown]
  - Pleural effusion [Recovered/Resolved]
  - Fluid retention [Recovered/Resolved]
  - Left atrial enlargement [Unknown]
  - Dyspnoea [Unknown]
  - Right ventricular systolic pressure increased [Unknown]
  - Cardiac failure [Recovered/Resolved]

NARRATIVE: CASE EVENT DATE: 201811
